FAERS Safety Report 7381342-7 (Version None)
Quarter: 2011Q1

REPORT INFORMATION
  Report Type: 
  Country: None (occurrence: None)
  Receive Date: 20110321
  Receipt Date: 20110307
  Transmission Date: 20110831
  Serious: Yes (Hospitalization)
  Sender: FDA-Public Use
  Company Number: UTC-004494

PATIENT
  Age: 78 Year
  Sex: Female
  Weight: 42.7 kg

DRUGS (10)
  1. FENTANYL TRANSDERMAL PATCH (FENTANYL) [Concomitant]
  2. LEXOTANIL (BROMAZEPAM) [Concomitant]
  3. SINTROM [Concomitant]
  4. PANTOLOC 40 (PANTOPRAZOLE) [Concomitant]
  5. CYMBALTA [Suspect]
  6. REMODULIN [Suspect]
     Indication: PULMONARY ARTERIAL HYPERTENSION
     Dosage: 38.88 UG/KG (0.027 UG/KG, 1 IN 1 MIN), SUBCUTANEOUS
     Route: 058
     Dates: start: 20101004
  7. BOSENTAN [Concomitant]
  8. LEVOTHYROXINE SODIUM [Concomitant]
  9. FUROSEMIDE [Concomitant]
  10. BLOPRESS PLUS [Concomitant]

REACTIONS (2)
  - COLITIS MICROSCOPIC [None]
  - INFECTION [None]
